FAERS Safety Report 8002771-4 (Version None)
Quarter: 2011Q4

REPORT INFORMATION
  Report Type: 
  Country: None (occurrence: None)
  Receive Date: 20111222
  Receipt Date: 20111215
  Transmission Date: 20120403
  Serious: No
  Sender: FDA-Public Use
  Company Number: US-B.I. PHARMACEUTICALS,INC./RIDGEFIELD-2011-BP-25326BP

PATIENT
  Sex: Male

DRUGS (23)
  1. PRADAXA [Suspect]
     Indication: ATRIAL FIBRILLATION
     Dosage: 300 MG
     Route: 048
     Dates: start: 20111010
  2. TOZAL [Concomitant]
     Indication: MACULAR DEGENERATION
  3. ZOLOFT [Concomitant]
     Indication: DEPRESSION
     Dosage: 100 MG
  4. LIPITOR [Concomitant]
     Indication: BLOOD CHOLESTEROL INCREASED
     Dosage: 80 MG
  5. STOOL SOFTENER [Concomitant]
  6. ENDURACIN [Concomitant]
     Indication: SUPPLEMENTATION THERAPY
     Dosage: 1500 MG
  7. OMEGA MAX [Concomitant]
     Indication: MACULAR DEGENERATION
  8. PLAVIX [Concomitant]
     Indication: ATRIAL FIBRILLATION
     Dosage: 75 MG
  9. ASPIRIN [Concomitant]
     Indication: ROUTINE HEALTH MAINTENANCE
  10. ANTIOXIDANT PLUS [Concomitant]
     Indication: MACULAR DEGENERATION
  11. VITAMIN D [Concomitant]
  12. THIAMINE HCL [Concomitant]
     Indication: SUPPLEMENTATION THERAPY
  13. ISOSORBIDE DINITRATE [Concomitant]
     Indication: CARDIAC DISORDER
     Dosage: 60 MG
  14. FINASTERIDE [Concomitant]
     Indication: URINARY TRACT DISORDER
     Dosage: 5 MG
  15. RANEXA [Concomitant]
     Indication: CARDIAC DISORDER
     Dosage: 1000 MG
  16. MULTI VITS [Concomitant]
     Indication: VITAMIN SUPPLEMENTATION
  17. GLIMEPIRIDE [Concomitant]
     Indication: DIABETES MELLITUS
     Dosage: 4 MG
  18. NORVASC [Concomitant]
     Indication: HYPERTENSION
     Dosage: 5 MG
  19. FLOMAX [Concomitant]
     Indication: URINARY TRACT DISORDER
  20. VITAMIN C [Concomitant]
  21. METOPROLOL TARTRATE [Concomitant]
     Indication: CARDIAC DISORDER
     Dosage: 25 MG
  22. ASPIRIN [Concomitant]
     Dosage: 81 MG
  23. VITAMIN B COMPLEX CAP [Concomitant]
     Indication: STRESS

REACTIONS (2)
  - HAEMATURIA [None]
  - CALCULUS BLADDER [None]
